FAERS Safety Report 5258525-5 (Version None)
Quarter: 2007Q1

REPORT INFORMATION
  Report Type: 
  Country: None (occurrence: None)
  Receive Date: 20070301
  Receipt Date: 20070223
  Transmission Date: 20070707
  Serious: Yes (Other)
  Sender: FDA-Public Use
  Company Number: 200610426BBE

PATIENT
  Age: 46 Year
  Sex: Male

DRUGS (3)
  1. GAMUNEX [Suspect]
     Indication: DERMATOMYOSITIS
     Dosage: 50 GM;QD;IV
     Route: 042
     Dates: start: 20060321, end: 20070124
  2. ENBREL [Concomitant]
  3. PREDNISONE [Concomitant]

REACTIONS (1)
  - ANTI-HBC IGG ANTIBODY POSITIVE [None]
